FAERS Safety Report 8441804-8 (Version None)
Quarter: 2012Q2

REPORT INFORMATION
  Report Type: 
  Country: None (occurrence: None)
  Receive Date: 20120615
  Receipt Date: 20120607
  Transmission Date: 20120825
  Serious: Yes (Hospitalization, Other)
  Sender: FDA-Public Use
  Company Number: US-BAYER-2011-111953

PATIENT
  Age: 29 Year
  Sex: Female
  Weight: 77.098 kg

DRUGS (10)
  1. BUPROPION HCL [Concomitant]
     Dosage: 75 MG, UNK
     Route: 048
  2. IMITREX [Concomitant]
  3. YAZ [Suspect]
     Indication: CONTRACEPTION
     Dosage: UNK
     Route: 048
     Dates: start: 20070402, end: 20080825
  4. SYNTHROID [Concomitant]
     Dosage: 200 ?G, UNK
     Route: 048
  5. CELEXA [Concomitant]
     Dosage: 20 MG, UNK
  6. WELLBUTRIN [Concomitant]
  7. CELEBREX [Concomitant]
     Dosage: 200 MG, QD
  8. ACETAMINOPHEN [Concomitant]
  9. BIAXIN [Concomitant]
     Dosage: 500 MG, UNK
  10. DOXYCYCLINE [Concomitant]
     Dosage: 100 MG, UNK
     Route: 048

REACTIONS (11)
  - VEIN DISORDER [None]
  - THROMBOPHLEBITIS SUPERFICIAL [None]
  - BACK PAIN [None]
  - PAIN [None]
  - INJURY [None]
  - ANXIETY [None]
  - EMOTIONAL DISTRESS [None]
  - ERYTHEMA [None]
  - OEDEMA PERIPHERAL [None]
  - DEEP VEIN THROMBOSIS [None]
  - PAIN IN EXTREMITY [None]
